FAERS Safety Report 10047390 (Version 1)
Quarter: 2014Q1

REPORT INFORMATION
  Report Type: Spontaneous
  Country: US (occurrence: None)
  Receive Date: 20140327
  Receipt Date: 20140327
  Transmission Date: 20141002
  Serious: Yes (Hospitalization)
  Sender: FDA-Public Use
  Company Number: CIO14020961

PATIENT
  Age: 66 Year
  Sex: Female

DRUGS (2)
  1. VICKS VAPORUB [Suspect]
     Indication: NAIL BED INFECTION FUNGAL
     Dosage: 1 APPLIC, 1 /DAY
     Route: 061
     Dates: start: 20130501
  2. ALL OTHER THERAPEUTIC PRODUCTS [Concomitant]

REACTIONS (5)
  - Loss of consciousness [None]
  - Blood pressure fluctuation [None]
  - Off label use [None]
  - Drug administered at inappropriate site [None]
  - Incorrect drug administration duration [None]
